APPROVED DRUG PRODUCT: ATRACURIUM BESYLATE
Active Ingredient: ATRACURIUM BESYLATE
Strength: 10MG/ML
Dosage Form/Route: INJECTABLE;INJECTION
Application: A074901 | Product #001 | TE Code: AP
Applicant: HIKMA PHARMACEUTICALS USA INC
Approved: Jul 18, 1997 | RLD: No | RS: Yes | Type: RX